FAERS Safety Report 10226760 (Version 1)
Quarter: 2014Q2

REPORT INFORMATION
  Report Type: Spontaneous
  Country: CN (occurrence: CN)
  Receive Date: 20140610
  Receipt Date: 20140610
  Transmission Date: 20141212
  Serious: Yes (Other)
  Sender: FDA-Public Use
  Company Number: CN-ROCHE-1415508

PATIENT
  Age: 52 Year
  Sex: Male
  Weight: 69 kg

DRUGS (2)
  1. PEGASYS [Suspect]
     Indication: VIRAL INFECTION
     Route: 058
     Dates: start: 20130222, end: 20130227
  2. RIBAVIRIN [Suspect]
     Indication: VIRAL INFECTION
     Route: 048
     Dates: start: 20130222, end: 20130227

REACTIONS (3)
  - Thrombocytopenia [Recovering/Resolving]
  - Haemorrhage [Recovering/Resolving]
  - Pruritus [Recovered/Resolved]
